FAERS Safety Report 4306767-5 (Version None)
Quarter: 2004Q1

REPORT INFORMATION
  Report Type: 
  Country: None (occurrence: None)
  Receive Date: 20040225
  Receipt Date: 20040210
  Transmission Date: 20041129
  Serious: Yes (Hospitalization)
  Sender: FDA-Public Use
  Company Number: US_0402100776

PATIENT
  Age: 55 Year
  Sex: Female
  Weight: 59 kg

DRUGS (3)
  1. HUMALOG [Suspect]
     Dosage: 2 U/3 DAY
     Dates: start: 20030201
  2. HUMULIN-HUMAN INSULIN (RDNA) UNKNOWN FORMULATION (HU [Suspect]
     Dates: end: 20030201
  3. LANTUS [Concomitant]

REACTIONS (11)
  - AMNESIA [None]
  - BLOOD GLUCOSE INCREASED [None]
  - CATARACT [None]
  - CELLULITIS [None]
  - DEVICE FAILURE [None]
  - ELECTROLYTE IMBALANCE [None]
  - LOSS OF CONSCIOUSNESS [None]
  - PHARMACEUTICAL PRODUCT COMPLAINT [None]
  - SKIN INFECTION [None]
  - STAPHYLOCOCCAL INFECTION [None]
  - VISUAL DISTURBANCE [None]
